FAERS Safety Report 7568873-1 (Version None)
Quarter: 2011Q2

REPORT INFORMATION
  Report Type: 
  Country: None (occurrence: None)
  Receive Date: 20110623
  Receipt Date: 20110621
  Transmission Date: 20111010
  Serious: Yes (Hospitalization)
  Sender: FDA-Public Use
  Company Number: IT-PFIZER INC-2011126736

PATIENT
  Age: 39 Year
  Sex: Female

DRUGS (9)
  1. TACHIDOL [Concomitant]
  2. PIPERACILLIN AND TAZOBACTAM [Suspect]
     Indication: BRONCHOPNEUMONIA
     Dosage: 4.5 G, 3X/DAY
     Dates: start: 20091230, end: 20100117
  3. CLINDAMYCIN HCL [Concomitant]
  4. OMEPRAZOLE [Concomitant]
  5. PARACETAMOL [Concomitant]
  6. LEVOFLOXACIN [Concomitant]
  7. POTASSIUM CHLORIDE [Concomitant]
  8. MICONAZOLE [Concomitant]
  9. SODIUM FERRIC GLUCONATE COMPLEX [Concomitant]

REACTIONS (2)
  - ABDOMINAL PAIN UPPER [None]
  - URTICARIA [None]
